FAERS Safety Report 10457105 (Version 2)
Quarter: 2014Q4

REPORT INFORMATION
  Report Type: Report from Study
  Country: JP (occurrence: JP)
  Receive Date: 20140916
  Receipt Date: 20141105
  Transmission Date: 20150528
  Serious: Yes (Death, Hospitalization)
  Sender: FDA-Public Use
  Company Number: JP-ALEXION PHARMACEUTICALS INC.-A201403488

PATIENT
  Age: 87 Year
  Sex: Female

DRUGS (3)
  1. G-CSF [Concomitant]
     Active Substance: FILGRASTIM
     Indication: PAROXYSMAL NOCTURNAL HAEMOGLOBINURIA
     Dosage: UNK
     Route: 065
     Dates: start: 201103
  2. SOLIRIS [Suspect]
     Active Substance: ECULIZUMAB
     Indication: PAROXYSMAL NOCTURNAL HAEMOGLOBINURIA
     Dosage: 600 MG, QW
     Route: 042
     Dates: start: 20100216
  3. SOLIRIS [Suspect]
     Active Substance: ECULIZUMAB
     Dosage: 900 MG, Q2W
     Route: 042
     Dates: start: 20100316, end: 20140316

REACTIONS (4)
  - Aplastic anaemia [Fatal]
  - Gastroenteritis [Recovered/Resolved]
  - Paroxysmal nocturnal haemoglobinuria [Fatal]
  - Condition aggravated [Fatal]

NARRATIVE: CASE EVENT DATE: 20131102
